FAERS Safety Report 7046317-6 (Version None)
Quarter: 2010Q4

REPORT INFORMATION
  Report Type: 
  Country: None (occurrence: None)
  Receive Date: 20101014
  Receipt Date: 20101007
  Transmission Date: 20110411
  Serious: Yes (Hospitalization)
  Sender: FDA-Public Use
  Company Number: B0679324A

PATIENT
  Sex: Female

DRUGS (7)
  1. NABUMETONE [Suspect]
     Dosage: 500MG VARIABLE DOSE
     Route: 048
     Dates: start: 20100804, end: 20100923
  2. PARIET [Suspect]
     Indication: PRODUCT USED FOR UNKNOWN INDICATION
     Route: 048
     Dates: start: 20100804, end: 20100923
  3. FENOFIBRATE [Concomitant]
  4. BISOPROLOL FUMARATE [Concomitant]
  5. ALDACTONE [Concomitant]
  6. PROZAC [Concomitant]
  7. DUSPATALIN [Concomitant]

REACTIONS (18)
  - CONJUNCTIVAL EROSION [None]
  - CONJUNCTIVAL ULCER [None]
  - DYSPHAGIA [None]
  - DYSURIA [None]
  - EYE DISORDER [None]
  - EYE IRRITATION [None]
  - GENITAL LESION [None]
  - LIP OEDEMA [None]
  - MUCOSAL EROSION [None]
  - NIKOLSKY'S SIGN [None]
  - ORAL DISORDER [None]
  - ORAL PAIN [None]
  - PRURIGO [None]
  - PURULENCE [None]
  - RASH [None]
  - RASH MACULO-PAPULAR [None]
  - STOMATITIS NECROTISING [None]
  - VULVITIS [None]
